FAERS Safety Report 12857078 (Version 2)
Quarter: 2016Q4

REPORT INFORMATION
  Report Type: Spontaneous
  Country: DE (occurrence: DE)
  Receive Date: 20161018
  Receipt Date: 20161109
  Transmission Date: 20170207
  Serious: Yes (Hospitalization)
  Sender: FDA-Public Use
  Company Number: DE-JNJFOC-20161011450

PATIENT
  Age: 37 Year
  Sex: Female
  Weight: 83 kg

DRUGS (1)
  1. XARELTO [Suspect]
     Active Substance: RIVAROXABAN
     Indication: PULMONARY EMBOLISM
     Dosage: 15-JAN-19
     Route: 048
     Dates: start: 2016, end: 20160926

REACTIONS (5)
  - Optic nerve neoplasm [Unknown]
  - Weight increased [Unknown]
  - Pain in extremity [Unknown]
  - Memory impairment [Unknown]
  - Post procedural pulmonary embolism [Recovered/Resolved]

NARRATIVE: CASE EVENT DATE: 201603
